FAERS Safety Report 12248186 (Version 1)
Quarter: 2016Q2

REPORT INFORMATION
  Report Type: Spontaneous
  Country: US (occurrence: None)
  Receive Date: 20160407
  Receipt Date: 20160407
  Transmission Date: 20160815
  Serious: No
  Sender: FDA-Public Use
  Company Number: None

PATIENT
  Sex: Female

DRUGS (21)
  1. TIZANIDINE. [Concomitant]
     Active Substance: TIZANIDINE
  2. VASCEPA [Concomitant]
     Active Substance: ICOSAPENT ETHYL
  3. ONGLYZA [Concomitant]
     Active Substance: SAXAGLIPTIN HYDROCHLORIDE
  4. VENTOLIN [Concomitant]
     Active Substance: ALBUTEROL SULFATE
  5. FISH OIL [Concomitant]
     Active Substance: FISH OIL
  6. LYRICA [Concomitant]
     Active Substance: PREGABALIN
  7. SMZ-TMP [Concomitant]
     Active Substance: SULFAMETHOXAZOLE\TRIMETHOPRIM
  8. REBIF [Suspect]
     Active Substance: INTERFERON BETA-1A
     Indication: MULTIPLE SCLEROSIS
     Route: 058
     Dates: start: 20140814
  9. NIACIN. [Concomitant]
     Active Substance: NIACIN
  10. MIRTAZAPINE. [Concomitant]
     Active Substance: MIRTAZAPINE
  11. FENOFIBRATE. [Concomitant]
     Active Substance: FENOFIBRATE
  12. VITAMIN D [Concomitant]
     Active Substance: CHOLECALCIFEROL
  13. TRAMADOL. [Concomitant]
     Active Substance: TRAMADOL
  14. SIMVASTATIN. [Concomitant]
     Active Substance: SIMVASTATIN
  15. PREMARIN [Concomitant]
     Active Substance: ESTROGENS, CONJUGATED
  16. POTASSIUM [Concomitant]
     Active Substance: POTASSIUM
  17. HYDROCO/APAP [Concomitant]
     Active Substance: ACETAMINOPHEN\HYDROCODONE
  18. METFORMIN [Concomitant]
     Active Substance: METFORMIN HYDROCHLORIDE
  19. VOLTAREN [Concomitant]
     Active Substance: DICLOFENAC SODIUM
  20. DULOXETINE. [Concomitant]
     Active Substance: DULOXETINE
  21. METOPROLOL. [Concomitant]
     Active Substance: METOPROLOL

REACTIONS (3)
  - Joint swelling [None]
  - Peripheral swelling [None]
  - Condition aggravated [None]

NARRATIVE: CASE EVENT DATE: 2016
